FAERS Safety Report 7621727-4 (Version None)
Quarter: 2011Q3

REPORT INFORMATION
  Report Type: 
  Country: None (occurrence: None)
  Receive Date: 20110719
  Receipt Date: 20110711
  Transmission Date: 20111222
  Serious: Yes (Other)
  Sender: FDA-Public Use
  Company Number: GB-GENENTECH-311841

PATIENT
  Sex: Female
  Weight: 95 kg

DRUGS (11)
  1. RITUXIMAB [Suspect]
     Route: 042
     Dates: start: 20101203, end: 20101206
  2. NICOTINAMIDE [Concomitant]
     Indication: PRODUCT USED FOR UNKNOWN INDICATION
     Dosage: 100 MG, UNK
     Route: 048
  3. VIBRAMYCIN [Concomitant]
     Indication: PRODUCT USED FOR UNKNOWN INDICATION
     Dosage: UNK
     Route: 048
  4. IMMUNE GLOBULIN INTRAVENOUS (HUMAN) [Concomitant]
     Indication: ACQUIRED EPIDERMOLYSIS BULLOSA
     Dosage: 6 G, 5/WEEK
     Route: 058
     Dates: start: 20030523
  5. RITUXIMAB [Suspect]
     Indication: EPIDERMOLYSIS BULLOSA
     Dosage: UNK
     Route: 042
     Dates: start: 20101126
  6. ENALAPRIL MALEATE [Concomitant]
     Indication: PRODUCT USED FOR UNKNOWN INDICATION
     Dosage: UNK
     Route: 048
  7. CITALOPRAM HYDROBROMIDE [Concomitant]
     Indication: PRODUCT USED FOR UNKNOWN INDICATION
     Dosage: UNK
  8. FLIXONASE [Concomitant]
     Indication: PRODUCT USED FOR UNKNOWN INDICATION
     Dosage: UNK
     Route: 048
  9. ACETAMINOPHEN [Concomitant]
     Indication: PRODUCT USED FOR UNKNOWN INDICATION
     Dosage: UNK
  10. MINOCYCLINE HCL [Concomitant]
     Indication: PRODUCT USED FOR UNKNOWN INDICATION
     Dosage: 100 MG, UNK
     Route: 048
  11. NYSTATIN [Concomitant]
     Indication: PRODUCT USED FOR UNKNOWN INDICATION
     Dosage: UNK
     Route: 048

REACTIONS (10)
  - VOMITING [None]
  - NAUSEA [None]
  - TYPE III IMMUNE COMPLEX MEDIATED REACTION [None]
  - ARTHRALGIA [None]
  - FLUSHING [None]
  - PRURITUS [None]
  - MUSCULOSKELETAL PAIN [None]
  - RASH ERYTHEMATOUS [None]
  - BACK PAIN [None]
  - CHILLS [None]
